FAERS Safety Report 20634156 (Version 1)
Quarter: 2022Q1

REPORT INFORMATION
  Report Type: Spontaneous
  Country: US (occurrence: US)
  Receive Date: 20220324
  Receipt Date: 20220324
  Transmission Date: 20220423
  Serious: Yes (Other)
  Sender: FDA-Public Use
  Company Number: US-drreddys-LIT/USA/22/0147953

PATIENT
  Age: 46 Year
  Sex: Female

DRUGS (4)
  1. IMATINIB MESYLATE [Suspect]
     Active Substance: IMATINIB MESYLATE
     Indication: Chronic myeloid leukaemia
  2. IMATINIB MESYLATE [Suspect]
     Active Substance: IMATINIB MESYLATE
     Dosage: GRADUALLY INCREASED
  3. IMATINIB MESYLATE [Suspect]
     Active Substance: IMATINIB MESYLATE
  4. IMATINIB MESYLATE [Suspect]
     Active Substance: IMATINIB MESYLATE

REACTIONS (1)
  - Hypersensitivity [Unknown]
